FAERS Safety Report 4333568-4 (Version None)
Quarter: 2004Q1

REPORT INFORMATION
  Report Type: 
  Country: None (occurrence: None)
  Receive Date: 20040329
  Receipt Date: 20040210
  Transmission Date: 20041129
  Serious: No
  Sender: FDA-Public Use
  Company Number: 04P-163-0249794-00

PATIENT
  Age: 73 Year
  Sex: Female

DRUGS (16)
  1. HUMIRA [Suspect]
     Indication: RHEUMATOID ARTHRITIS
     Dosage: 40 MG, 1 IN 2 WK, SUBCUTANEOUS
     Route: 058
     Dates: start: 20031001
  2. INSULIN LISPRO [Concomitant]
  3. CELECOXIB [Concomitant]
  4. LEFLUNOMIDE [Concomitant]
  5. PROVELLA-14 [Concomitant]
  6. LISINOPRIL [Concomitant]
  7. IRBESARTAN [Concomitant]
  8. HYDROCHLOROTHIAZIDE [Concomitant]
  9. POLYSACCHARIDE-IRON COMPLEX [Concomitant]
  10. RANITIDINE [Concomitant]
  11. RISEDRONATE SODIUM [Concomitant]
  12. ASCORBIC ACID [Concomitant]
  13. TOCOPHEROL CONCENTRATE CAP [Concomitant]
  14. MULTI-VITAMINS [Concomitant]
  15. CALCIUM [Concomitant]
  16. GLUCOSAMINE W/ CHONDROITIN SULFATES [Concomitant]

REACTIONS (2)
  - DRUG EFFECT DECREASED [None]
  - INJECTION SITE STINGING [None]
